FAERS Safety Report 9472935 (Version 2)
Quarter: 2013Q3

REPORT INFORMATION
  Report Type: Spontaneous
  Country: US (occurrence: US)
  Receive Date: 20130823
  Receipt Date: 20130823
  Transmission Date: 20140515
  Serious: No
  Sender: FDA-Public Use
  Company Number: US-BRISTOL-MYERS SQUIBB COMPANY-17249541

PATIENT
  Age: 28 Year
  Sex: Male
  Weight: 84.8 kg

DRUGS (1)
  1. SPRYCEL [Suspect]
     Indication: CHRONIC MYELOID LEUKAEMIA
     Route: 048
     Dates: start: 20120822

REACTIONS (7)
  - Fatigue [Unknown]
  - Disorientation [Unknown]
  - Dizziness [Unknown]
  - Extrasystoles [Unknown]
  - Pain [Unknown]
  - Leukopenia [Unknown]
  - Thrombocytopenia [Unknown]
